FAERS Safety Report 4262953-4 (Version None)
Quarter: 2004Q1

REPORT INFORMATION
  Report Type: 
  Country: None (occurrence: None)
  Receive Date: 20040102
  Receipt Date: 20040102
  Transmission Date: 20041129
  Serious: No
  Sender: FDA-Public Use
  Company Number: None

PATIENT
  Sex: Male
  Weight: 81.6475 kg

DRUGS (8)
  1. METFORMIN HCL [Suspect]
     Indication: DIABETES MELLITUS
     Dosage: 1 TAB TWICE DAILY
     Dates: start: 20030710
  2. METFORMIN HCL [Suspect]
     Indication: DIABETES MELLITUS
     Dosage: 1 TAB TWICE DAILY
     Dates: start: 20030923
  3. METOPROLOL TARTRATE [Concomitant]
  4. FLOMAX [Concomitant]
  5. PLETAL [Concomitant]
  6. SOMA [Concomitant]
  7. CELEBREX [Concomitant]
  8. PROSCAR [Concomitant]

REACTIONS (6)
  - BLOOD GLUCOSE INCREASED [None]
  - DRY MOUTH [None]
  - DRY THROAT [None]
  - PHARMACEUTICAL PRODUCT COMPLAINT [None]
  - TONGUE DRY [None]
  - WEIGHT INCREASED [None]
